FAERS Safety Report 10173100 (Version 1)
Quarter: 2014Q2

REPORT INFORMATION
  Report Type: Spontaneous
  Country: US (occurrence: US)
  Receive Date: 20140515
  Receipt Date: 20140515
  Transmission Date: 20141212
  Serious: No
  Sender: FDA-Public Use
  Company Number: US-BAYER-2014-071515

PATIENT
  Age: 52 Year
  Sex: Female
  Weight: 98 kg

DRUGS (1)
  1. ALEVE CAPLET [Suspect]
     Dosage: 2 DF, UNK
     Route: 048

REACTIONS (4)
  - Throat irritation [Recovered/Resolved]
  - Oesophageal pain [Recovered/Resolved]
  - Oral discomfort [Recovered/Resolved]
  - Ear discomfort [Recovered/Resolved]
